FAERS Safety Report 4716332-3 (Version None)
Quarter: 2005Q3

REPORT INFORMATION
  Report Type: 
  Country: None (occurrence: None)
  Receive Date: 20050711
  Receipt Date: 20050418
  Transmission Date: 20060218
  Serious: Yes (Hospitalization)
  Sender: FDA-Public Use
  Company Number: 004618

PATIENT
  Age: 17 Year
  Sex: Female
  Weight: 54.4 kg

DRUGS (2)
  1. SEASONALE [Suspect]
     Indication: ORAL CONTRACEPTION
     Dosage: 1.00 TABLET QD ORAL
     Route: 048
     Dates: start: 20050301, end: 20050401
  2. PROZAC [Concomitant]

REACTIONS (2)
  - DEPRESSION [None]
  - MOOD ALTERED [None]
